FAERS Safety Report 8978972 (Version 3)
Quarter: 2013Q2

REPORT INFORMATION
  Report Type: Report from Study
  Country: US (occurrence: US)
  Receive Date: 20121220
  Receipt Date: 20130529
  Transmission Date: 20140414
  Serious: Yes (Other)
  Sender: FDA-Public Use
  Company Number: US-PFIZER INC-2012311898

PATIENT
  Age: 76 Year
  Sex: Male
  Weight: 75.8 kg

DRUGS (5)
  1. TEMSIROLIMUS [Suspect]
     Indication: MANTLE CELL LYMPHOMA
     Dosage: 15 MG, CYCLIC (DAY 1)
     Route: 042
     Dates: start: 20090803, end: 20091228
  2. CLADRIBINE [Suspect]
     Indication: MANTLE CELL LYMPHOMA
     Dosage: 5 MG/M2, CYCLIC (5 MG/M2/DAY 1,2,3,4,5)
     Route: 042
     Dates: start: 20090803, end: 20100102
  3. RITUXIMAB [Suspect]
     Indication: MANTLE CELL LYMPHOMA
     Dosage: 375 MG/M2, CYCLIC (375 MG/M2/DAY CYCLE 1 ONLY, DAYS 1 AND 2 SUBSEQUENT CYCLES, DAY 1)
     Route: 042
     Dates: start: 20090803, end: 20091228
  4. FLOVENT HFA [Concomitant]
     Dosage: 2 PUFFS BY INHALATION, 2X/DAY
     Route: 055
     Dates: start: 200907
  5. PRO-AIR 90 [Concomitant]
     Dosage: 1 PUFF BY INHALATION, 2X/DAY
     Route: 055
     Dates: start: 200907

REACTIONS (2)
  - Second primary malignancy [Not Recovered/Not Resolved]
  - Myelodysplastic syndrome [Not Recovered/Not Resolved]
